FAERS Safety Report 6791845-1 (Version None)
Quarter: 2010Q2

REPORT INFORMATION
  Report Type: 
  Country: None (occurrence: None)
  Receive Date: 20100624
  Receipt Date: 20090625
  Transmission Date: 20101027
  Serious: Yes (Other)
  Sender: FDA-Public Use
  Company Number: US-PFIZER INC-2008058849

PATIENT
  Sex: Female
  Weight: 72 kg

DRUGS (8)
  1. PROVERA [Suspect]
     Indication: HORMONE REPLACEMENT THERAPY
     Route: 048
     Dates: start: 19940101, end: 19960101
  2. PREMARIN [Suspect]
     Indication: HORMONE REPLACEMENT THERAPY
     Dosage: UNK
     Dates: end: 19960101
  3. PREMPRO [Suspect]
     Indication: HORMONE REPLACEMENT THERAPY
     Dosage: UNK
     Dates: start: 19950101, end: 20020501
  4. MEGACE [Suspect]
     Indication: HORMONE REPLACEMENT THERAPY
     Dosage: UNK
     Dates: start: 19781101
  5. ASPIRINE [Concomitant]
     Indication: CARDIAC DISORDER
     Dosage: 81 MG, UNK
     Dates: start: 20011102
  6. ATENOLOL [Concomitant]
     Indication: CARDIAC DISORDER
     Dosage: 50 MG, UNK
     Dates: start: 20011102
  7. DYAZIDE [Concomitant]
     Indication: FLUID RETENTION
     Dosage: ONE PILL DAILY
     Dates: start: 20011102
  8. THIAMINE [Concomitant]
     Indication: PERNICIOUS ANAEMIA
     Dosage: UNK
     Dates: start: 19770101

REACTIONS (1)
  - BREAST CANCER FEMALE [None]
